FAERS Safety Report 22599619 (Version 2)
Quarter: 2023Q2

REPORT INFORMATION
  Report Type: Report from Study
  Country: US (occurrence: US)
  Receive Date: 20230614
  Receipt Date: 20230629
  Transmission Date: 20230721
  Serious: Yes (Hospitalization)
  Sender: FDA-Public Use
  Company Number: US-GILEAD-2023-0632572

PATIENT
  Age: 60 Year
  Sex: Male

DRUGS (2)
  1. SOFOSBUVIR\VELPATASVIR [Suspect]
     Active Substance: SOFOSBUVIR\VELPATASVIR
     Indication: Chronic hepatitis C
     Dosage: 1 DOSAGE FORM, QD (400/100 MG)
     Route: 048
     Dates: start: 20230527
  2. SOFOSBUVIR\VELPATASVIR [Suspect]
     Active Substance: SOFOSBUVIR\VELPATASVIR
     Dosage: 400/100MG
     Route: 048
     Dates: start: 20230508

REACTIONS (4)
  - Palpitations [Not Recovered/Not Resolved]
  - Hypertension [Unknown]
  - Enzyme level increased [Unknown]
  - Product dose omission issue [Not Recovered/Not Resolved]

NARRATIVE: CASE EVENT DATE: 20230514
